FAERS Safety Report 9490684 (Version 2)
Quarter: 2013Q3

REPORT INFORMATION
  Report Type: Report from Study
  Country: CA (occurrence: CA)
  Receive Date: 20130830
  Receipt Date: 20130913
  Transmission Date: 20140515
  Serious: Yes (Death)
  Sender: FDA-Public Use
  Company Number: CA-ABBOTT-13P-028-1140712-00

PATIENT
  Age: 91 Year
  Sex: Male
  Weight: 80.81 kg

DRUGS (1)
  1. LUPRON DEPOT [Suspect]
     Indication: PROSTATE CANCER
     Route: 030
     Dates: start: 20090713

REACTIONS (2)
  - Cerebrovascular accident [Fatal]
  - Pneumonia [Fatal]
